FAERS Safety Report 10371274 (Version 1)
Quarter: 2014Q3

REPORT INFORMATION
  Report Type: Other
  Country: GB (occurrence: GB)
  Receive Date: 20140808
  Receipt Date: 20140808
  Transmission Date: 20150326
  Serious: Yes (Other)
  Sender: FDA-Public Use
  Company Number: GB-MYLAN-2014S1017948

PATIENT

DRUGS (6)
  1. LEVOTHYROXINE [Concomitant]
     Active Substance: LEVOTHYROXINE
     Indication: THYROXINE DECREASED
     Dosage: 125 UNK,QD
     Dates: start: 20140211
  2. DICLOMAX /00372302/ [Suspect]
     Active Substance: DICLOFENAC SODIUM
     Indication: ARTHRITIS
     Dosage: 75 MG,QD
     Route: 065
  3. MELOXICAM. [Suspect]
     Active Substance: MELOXICAM
     Indication: ARTHRITIS
     Dosage: 15 MG, QD
     Route: 065
     Dates: start: 20130813, end: 20140321
  4. ZOPICLONE [Concomitant]
     Active Substance: ZOPICLONE
     Indication: INSOMNIA
     Dosage: 7.5 UNK,QD
     Dates: start: 20140211
  5. OMEPRAZOLE. [Concomitant]
     Active Substance: OMEPRAZOLE
     Indication: PROPHYLAXIS AGAINST GASTROINTESTINAL ULCER
     Dosage: 20 UNK,QD
     Dates: start: 20140211
  6. ATENOLOL. [Concomitant]
     Active Substance: ATENOLOL
     Indication: MYOCARDIAL ISCHAEMIA
     Dosage: 25 MG,QD
     Dates: start: 20140211

REACTIONS (4)
  - Renal impairment [Unknown]
  - Inadequate analgesia [None]
  - Malaise [None]
  - Thirst [Unknown]
